FAERS Safety Report 13742550 (Version 1)
Quarter: 2017Q3

REPORT INFORMATION
  Report Type: Spontaneous
  Country: US (occurrence: US)
  Receive Date: 20170711
  Receipt Date: 20170711
  Transmission Date: 20171127
  Serious: Yes (Other)
  Sender: FDA-Public Use
  Company Number: US-SAOL THERAPEUTICS-2016SAO00212

PATIENT
  Age: 26 Year
  Sex: Male

DRUGS (3)
  1. LIORESAL [Suspect]
     Active Substance: BACLOFEN
     Indication: MUSCLE SPASTICITY
  2. GABLOFEN [Suspect]
     Active Substance: BACLOFEN
     Dosage: UNK
  3. LIORESAL [Suspect]
     Active Substance: BACLOFEN
     Indication: CEREBRAL PALSY
     Dosage: 2198.0 ?G, \DAY
     Dates: start: 20160622

REACTIONS (3)
  - Nausea [Unknown]
  - Vomiting [Unknown]
  - Device malfunction [Recovered/Resolved]

NARRATIVE: CASE EVENT DATE: 20160601
